FAERS Safety Report 9298110 (Version 1)
Quarter: 2012Q4

REPORT INFORMATION
  Report Type: Spontaneous
  Country: FR (occurrence: None)
  Receive Date: 20121031
  Receipt Date: 20121031
  Transmission Date: 20130627
  Serious: Yes (Hospitalization)
  Sender: FDA-Public Use
  Company Number: FR 2000 0001

PATIENT
  Age: 73 Year
  Sex: Male
  Weight: 109 kg

DRUGS (2)
  1. LIPIODOL ULTRA FLUIDE (ETHIODIZED OIL) [Suspect]
     Indication: HEPATIC EMBOLISATION
     Route: 013
     Dates: start: 19991207, end: 19991207
  2. AMETYCINE [Suspect]
     Indication: HEPATIC EMBOLISATION
     Route: 013
     Dates: start: 19991207, end: 19991207

REACTIONS (3)
  - Urticaria [None]
  - Conjunctivitis [None]
  - Off label use [None]
